FAERS Safety Report 7041713-5 (Version None)
Quarter: 2010Q4

REPORT INFORMATION
  Report Type: 
  Country: None (occurrence: None)
  Receive Date: 20101013
  Receipt Date: 20100622
  Transmission Date: 20110411
  Serious: No
  Sender: FDA-Public Use
  Company Number: US-ASTRAZENECA-2010SE29192

PATIENT
  Age: 67 Year
  Sex: Male
  Weight: 102.1 kg

DRUGS (1)
  1. SYMBICORT [Suspect]
     Indication: EMPHYSEMA
     Route: 055
     Dates: start: 20100601

REACTIONS (1)
  - URINE FLOW DECREASED [None]
